FAERS Safety Report 16527986 (Version 1)
Quarter: 2019Q3

REPORT INFORMATION
  Report Type: Spontaneous
  Country: JP (occurrence: JP)
  Receive Date: 20190704
  Receipt Date: 20190704
  Transmission Date: 20191004
  Serious: Yes (Other)
  Sender: FDA-Public Use
  Company Number: JP-ASTRAZENECA-2019SE95271

PATIENT
  Sex: Male
  Weight: 42 kg

DRUGS (1)
  1. SYMBICORT [Suspect]
     Active Substance: BUDESONIDE\FORMOTEROL FUMARATE DIHYDRATE
     Indication: ASTHMA
     Dosage: DOSE UNKNOWN
     Route: 055

REACTIONS (7)
  - Off label use [Unknown]
  - Pyrexia [Unknown]
  - Nasopharyngitis [Unknown]
  - Toxicity to various agents [Unknown]
  - Head discomfort [Unknown]
  - Dysarthria [Unknown]
  - Abdominal discomfort [Unknown]
